FAERS Safety Report 7706750-3 (Version None)
Quarter: 2011Q3

REPORT INFORMATION
  Report Type: 
  Country: None (occurrence: None)
  Receive Date: 20110824
  Receipt Date: 20110810
  Transmission Date: 20111222
  Serious: Yes (Other)
  Sender: FDA-Public Use
  Company Number: AU-CELGENEUS-008-20785-11081648

PATIENT
  Sex: Female

DRUGS (4)
  1. BONEFOS [Concomitant]
     Dosage: 2 TABS
     Route: 065
  2. THALIDOMIDE [Suspect]
     Indication: MULTIPLE MYELOMA
     Route: 048
  3. PANTOPRAZOLE [Concomitant]
     Dosage: 1 TAB
     Route: 065
  4. OSTELIN [Concomitant]
     Dosage: 2 TABLET
     Route: 065

REACTIONS (3)
  - COLON CANCER STAGE II [None]
  - RENAL FAILURE ACUTE [None]
  - PERIPHERAL SENSORY NEUROPATHY [None]
